FAERS Safety Report 12190966 (Version 1)
Quarter: 2016Q1

REPORT INFORMATION
  Report Type: Spontaneous
  Country: US (occurrence: US)
  Receive Date: 20160318
  Receipt Date: 20160318
  Transmission Date: 20160526
  Serious: No
  Sender: FDA-Public Use
  Company Number: US-TEVA-631803USA

PATIENT
  Age: 71 Year
  Sex: Female
  Weight: 52.21 kg

DRUGS (1)
  1. DULOXETINE. [Suspect]
     Active Substance: DULOXETINE
     Dates: start: 20160129, end: 20160201

REACTIONS (8)
  - Nausea [Recovered/Resolved]
  - Asthenia [Unknown]
  - Drug prescribing error [Unknown]
  - Drug dose omission [Unknown]
  - Headache [Recovered/Resolved]
  - Abdominal pain upper [Recovered/Resolved]
  - Decreased appetite [Recovered/Resolved]
  - Fatigue [Recovered/Resolved]

NARRATIVE: CASE EVENT DATE: 20160131
